FAERS Safety Report 6011171-8 (Version None)
Quarter: 2008Q4

REPORT INFORMATION
  Report Type: 
  Country: None (occurrence: None)
  Receive Date: 20081216
  Receipt Date: 20081202
  Transmission Date: 20090506
  Serious: Yes (Hospitalization)
  Sender: FDA-Public Use
  Company Number: 236141J08USA

PATIENT
  Age: 52 Year
  Sex: Male
  Weight: 100 kg

DRUGS (5)
  1. REBIF [Suspect]
     Indication: MULTIPLE SCLEROSIS
     Dosage: 22 MCG, 3 IN 1 WEEKS, SUBCUTANEOUS
     Route: 058
     Dates: start: 20080521, end: 20080616
  2. SYMBICORT [Suspect]
     Indication: ASTHMA
     Dosage: NOT REPORTED
     Dates: start: 20070101, end: 20080601
  3. ALBUTEROL (SALBUTAMOL /00139501/) [Concomitant]
  4. ACIPHEX [Concomitant]
  5. ADVIL (IBUPROFREN) [Concomitant]

REACTIONS (2)
  - ATRIAL FIBRILLATION [None]
  - FATIGUE [None]
